FAERS Safety Report 22317631 (Version 1)
Quarter: 2023Q2

REPORT INFORMATION
  Report Type: Report from Study
  Country: CA (occurrence: CA)
  Receive Date: 20230515
  Receipt Date: 20230515
  Transmission Date: 20230722
  Serious: Yes (Other)
  Sender: FDA-Public Use
  Company Number: CA-ABBVIE-4748198

PATIENT
  Age: 75 Year
  Sex: Female

DRUGS (1)
  1. RINVOQ [Suspect]
     Active Substance: UPADACITINIB
     Indication: Rheumatoid arthritis
     Dosage: FORM STRENGTH: 15 MG
     Route: 048
     Dates: start: 20220811

REACTIONS (9)
  - Skin cancer [Recovered/Resolved]
  - Peripheral swelling [Unknown]
  - Dyspnoea [Not Recovered/Not Resolved]
  - Protein total increased [Unknown]
  - Skin laceration [Recovered/Resolved]
  - Impaired healing [Recovered/Resolved]
  - COVID-19 [Unknown]
  - Secretion discharge [Recovering/Resolving]
  - Disease risk factor [Unknown]

NARRATIVE: CASE EVENT DATE: 20221001
